FAERS Safety Report 4917126-6 (Version None)
Quarter: 2006Q1

REPORT INFORMATION
  Report Type: 
  Country: None (occurrence: None)
  Receive Date: 20060214
  Receipt Date: 20060201
  Transmission Date: 20060701
  Serious: Yes (Other)
  Sender: FDA-Public Use
  Company Number: IT200602000400

PATIENT
  Age: 63 Year
  Sex: Male

DRUGS (3)
  1. GEMZAR [Suspect]
     Indication: LUNG NEOPLASM MALIGNANT
     Dosage: 1000 MG/M2, OTHER, INTRAVENOUS
     Route: 042
     Dates: start: 20060111, end: 20060118
  2. CISPLATIN [Concomitant]
  3. PLAVIX [Concomitant]

REACTIONS (1)
  - THROMBOCYTHAEMIA [None]
